FAERS Safety Report 21595668 (Version 4)
Quarter: 2023Q1

REPORT INFORMATION
  Report Type: Report from Study
  Country: US (occurrence: US)
  Receive Date: 20221115
  Receipt Date: 20230317
  Transmission Date: 20230417
  Serious: No
  Sender: FDA-Public Use
  Company Number: US-002147023-NVSC2022US256581

PATIENT
  Age: 35 Year
  Sex: Male
  Weight: 86.18 kg

DRUGS (2)
  1. COSENTYX [Suspect]
     Active Substance: SECUKINUMAB
     Indication: Product used for unknown indication
     Dosage: 300 MG/KG, QW
     Route: 058
     Dates: start: 20201110
  2. COSENTYX [Suspect]
     Active Substance: SECUKINUMAB
     Dosage: 150 MG, QMO
     Route: 030
     Dates: start: 20220101, end: 20221114

REACTIONS (5)
  - Weight decreased [Unknown]
  - Nervousness [Unknown]
  - Device malfunction [Unknown]
  - Accidental exposure to product [Not Recovered/Not Resolved]
  - Wrong technique in device usage process [Unknown]

NARRATIVE: CASE EVENT DATE: 20221110
